APPROVED DRUG PRODUCT: MECLIZINE HYDROCHLORIDE
Active Ingredient: MECLIZINE HYDROCHLORIDE
Strength: 12.5MG
Dosage Form/Route: TABLET;ORAL
Application: A088256 | Product #001
Applicant: UDL LABORATORIES INC
Approved: Jun 13, 1983 | RLD: No | RS: No | Type: DISCN